FAERS Safety Report 8154395-6 (Version None)
Quarter: 2012Q1

REPORT INFORMATION
  Report Type: 
  Country: None (occurrence: None)
  Receive Date: 20120103
  Receipt Date: 20111004
  Transmission Date: 20120608
  Serious: No
  Sender: FDA-Public Use
  Company Number: AE-2011-00929

PATIENT
  Age: 52 Year
  Sex: Female

DRUGS (5)
  1. INCIVEK [Suspect]
     Dates: start: 20110101, end: 20110101
  2. METOPROLOL TARTRATE [Concomitant]
  3. RIBAVIRIN [Concomitant]
  4. PEGASYS [Concomitant]
  5. HYZAAR [Concomitant]

REACTIONS (1)
  - RASH VESICULAR [None]
